FAERS Safety Report 18916739 (Version 1)
Quarter: 2021Q1

REPORT INFORMATION
  Report Type: Spontaneous
  Country: US (occurrence: US)
  Receive Date: 20210219
  Receipt Date: 20210219
  Transmission Date: 20210420
  Serious: Yes (Hospitalization, Other)
  Sender: FDA-Public Use
  Company Number: US-SA-2021SA053649

PATIENT
  Age: 67 Year
  Sex: Male

DRUGS (3)
  1. FLUOROURACIL. [Concomitant]
     Active Substance: FLUOROURACIL
     Indication: RECTAL ADENOCARCINOMA
     Dosage: UNK UNK, QCY
  2. FOLINIC ACID [Concomitant]
     Active Substance: LEUCOVORIN
     Indication: RECTAL ADENOCARCINOMA
     Dosage: UNK UNK, QCY
  3. OXALIPLATIN. [Suspect]
     Active Substance: OXALIPLATIN
     Indication: RECTAL ADENOCARCINOMA
     Dosage: UNK UNK, QCY

REACTIONS (8)
  - Asthenia [Recovered/Resolved]
  - Dysphagia [Recovered/Resolved]
  - Hyporeflexia [Recovered/Resolved]
  - Sensory loss [Recovered/Resolved]
  - Areflexia [Recovered/Resolved]
  - Muscular weakness [Recovered/Resolved]
  - Nerve conduction studies abnormal [Recovered/Resolved]
  - Guillain-Barre syndrome [Recovered/Resolved]
